FAERS Safety Report 9762850 (Version 2)
Quarter: 2013Q4

REPORT INFORMATION
  Report Type: Report from Study
  Country: US (occurrence: US)
  Receive Date: 20131216
  Receipt Date: 20131216
  Transmission Date: 20140711
  Serious: Yes (Other)
  Sender: FDA-Public Use
  Company Number: US-ACORDA-ACO_38396_2013

PATIENT
  Age: 38 Year
  Sex: Female
  Weight: 59.27 kg

DRUGS (4)
  1. PLACEBO [Suspect]
     Indication: BALANCE DISORDER
     Dosage: 10MG, BID
     Route: 048
     Dates: start: 20121211, end: 20130305
  2. CYMBALTA [Concomitant]
     Indication: DEPRESSION
     Dosage: UNK
     Route: 065
  3. CYMBALTA [Concomitant]
     Indication: SUICIDAL IDEATION
  4. TYSABRI [Concomitant]
     Indication: PRODUCT USED FOR UNKNOWN INDICATION
     Dosage: UNK
     Route: 065

REACTIONS (3)
  - Suicidal ideation [Recovered/Resolved]
  - Urinary tract infection [Recovered/Resolved]
  - Headache [Recovered/Resolved]
